FAERS Safety Report 24084750 (Version 1)
Quarter: 2024Q3

REPORT INFORMATION
  Report Type: Spontaneous
  Country: FR (occurrence: FR)
  Receive Date: 20240712
  Receipt Date: 20240712
  Transmission Date: 20241016
  Serious: Yes (Disabling)
  Sender: PFIZER
  Company Number: None

PATIENT
  Age: 15 Year
  Sex: Male
  Weight: 38.1 kg

DRUGS (22)
  1. CYTARABINE [Suspect]
     Active Substance: CYTARABINE
     Indication: B-cell lymphoma
     Dosage: 132 MG, 1X/DAY
     Route: 042
     Dates: start: 20240113, end: 20240114
  2. CYTARABINE [Suspect]
     Active Substance: CYTARABINE
     Dosage: 3900 MG, 1X/DAY
     Route: 042
     Dates: start: 20240205, end: 20240206
  3. CYTARABINE [Suspect]
     Active Substance: CYTARABINE
     Dosage: 3900 MG, 1X/DAY
     Route: 042
     Dates: start: 20240114, end: 20240115
  4. DOXORUBICIN HYDROCHLORIDE [Suspect]
     Active Substance: DOXORUBICIN HYDROCHLORIDE
     Indication: B-cell lymphoma
     Dosage: 80 MG, SINGLE
     Route: 042
     Dates: start: 20231204, end: 20231204
  5. DOXORUBICIN HYDROCHLORIDE [Suspect]
     Active Substance: DOXORUBICIN HYDROCHLORIDE
     Dosage: 78 MG, SINGLE
     Route: 042
     Dates: start: 20231224, end: 20231224
  6. MEROPENEM [Suspect]
     Active Substance: MEROPENEM
     Indication: Sepsis
     Dosage: 770 MG, 1X/DAY
     Route: 042
     Dates: start: 20240217, end: 20240226
  7. RITUXIMAB [Suspect]
     Active Substance: RITUXIMAB
     Indication: B-cell lymphoma
     Dosage: 490 MG, 1X/DAY
     Route: 042
     Dates: start: 20231220, end: 20231220
  8. RITUXIMAB [Suspect]
     Active Substance: RITUXIMAB
     Dosage: 490 MG, 1X/DAY
     Route: 042
     Dates: start: 20240112, end: 20240112
  9. VINCRISTINE SULFATE [Suspect]
     Active Substance: VINCRISTINE SULFATE
     Indication: B-cell lymphoma
     Dosage: 1.3 MG, SINGLE
     Route: 042
     Dates: start: 20231125, end: 20231125
  10. VINCRISTINE SULFATE [Suspect]
     Active Substance: VINCRISTINE SULFATE
     Dosage: 2 MG, SINGLE
     Route: 042
     Dates: start: 20231203, end: 20231203
  11. VINCRISTINE SULFATE [Suspect]
     Active Substance: VINCRISTINE SULFATE
     Dosage: 2 MG, SINGLE
     Route: 042
     Dates: start: 20231223, end: 20231223
  12. AMIKACIN [Suspect]
     Active Substance: AMIKACIN
     Indication: Sepsis
     Dosage: 770 MG, 1X/DAY
     Route: 042
     Dates: start: 20240217, end: 20240218
  13. CYCLOPHOSPHAMIDE [Suspect]
     Active Substance: CYCLOPHOSPHAMIDE
     Indication: B-cell lymphoma
     Dosage: 400 MG, SINGLE
     Route: 042
     Dates: start: 20231125, end: 20231125
  14. CYCLOPHOSPHAMIDE [Suspect]
     Active Substance: CYCLOPHOSPHAMIDE
     Dosage: 660 MG, 1X/DAY
     Route: 042
     Dates: start: 20231204, end: 20231207
  15. ETOPOSIDE PHOSPHATE [Suspect]
     Active Substance: ETOPOSIDE PHOSPHATE
     Indication: B-cell lymphoma
     Dosage: 260 MG, 1X/DAY
     Route: 042
     Dates: start: 20240115, end: 20240117
  16. ETOPOSIDE PHOSPHATE [Suspect]
     Active Substance: ETOPOSIDE PHOSPHATE
     Dosage: 260 MG, 1X/DAY
     Route: 042
     Dates: start: 20240203, end: 20240205
  17. METHOTREXATE SODIUM [Suspect]
     Active Substance: METHOTREXATE SODIUM
     Indication: B-cell lymphoma
     Dosage: 3950 MG, SINGLE
     Route: 042
     Dates: start: 20231203, end: 20231203
  18. METHOTREXATE SODIUM [Suspect]
     Active Substance: METHOTREXATE SODIUM
     Dosage: 15 MG, SINGLE
     Route: 037
     Dates: start: 20231204, end: 20231204
  19. METHOTREXATE SODIUM [Suspect]
     Active Substance: METHOTREXATE SODIUM
     Dosage: 3950 MG, SINGLE
     Route: 042
     Dates: start: 20231223, end: 20231223
  20. METHOTREXATE SODIUM [Suspect]
     Active Substance: METHOTREXATE SODIUM
     Dosage: 15 MG, SINGLE
     Route: 037
     Dates: start: 20231224, end: 20231224
  21. VANCOMYCIN [Suspect]
     Active Substance: VANCOMYCIN
     Indication: Sepsis
     Dosage: 1140 MG, 1X/DAY
     Route: 042
     Dates: start: 20240218
  22. HYDROCORTISONE [Concomitant]
     Active Substance: HYDROCORTISONE\HYDROCORTISONE ACETATE
     Indication: Sepsis
     Dosage: FREQ:2 {TOTAL};
     Route: 037
     Dates: start: 20231204, end: 20231224

REACTIONS (1)
  - Quadriparesis [Not Recovered/Not Resolved]

NARRATIVE: CASE EVENT DATE: 20240219
